FAERS Safety Report 10755820 (Version 1)
Quarter: 2015Q1

REPORT INFORMATION
  Report Type: Spontaneous
  Country: US (occurrence: US)
  Receive Date: 20150202
  Receipt Date: 20150202
  Transmission Date: 20150721
  Serious: No
  Sender: FDA-Public Use
  Company Number: US-MALLINCKRODT-T201402152

PATIENT
  Age: 50 Year
  Sex: Female

DRUGS (3)
  1. OPTIMARK [Suspect]
     Active Substance: GADOVERSETAMIDE
     Indication: NUCLEAR MAGNETIC RESONANCE IMAGING
     Dosage: 20 ML, SINGLE, VIA INJECTOR
     Route: 065
     Dates: start: 20140507, end: 20140507
  2. OPTIMARK [Suspect]
     Active Substance: GADOVERSETAMIDE
     Dosage: 20 ML, SINGLE, VIA INJECTOR
     Route: 065
     Dates: start: 20140507, end: 20140507
  3. SALINE [Concomitant]
     Active Substance: SODIUM CHLORIDE
     Indication: NUCLEAR MAGNETIC RESONANCE IMAGING
     Dosage: UNK
     Dates: start: 20140507, end: 20140507

REACTIONS (2)
  - Extra dose administered [Recovered/Resolved]
  - Device malfunction [Unknown]

NARRATIVE: CASE EVENT DATE: 20140507
